FAERS Safety Report 7825046-2 (Version None)
Quarter: 2011Q4

REPORT INFORMATION
  Report Type: 
  Country: None (occurrence: None)
  Receive Date: 20111019
  Receipt Date: 20110523
  Transmission Date: 20120403
  Serious: No
  Sender: FDA-Public Use
  Company Number: US-BRISTOL-MYERS SQUIBB COMPANY-15682776

PATIENT
  Age: 47 Year
  Sex: Male

DRUGS (2)
  1. AVAPRO [Suspect]
  2. AVALIDE [Suspect]

REACTIONS (1)
  - DRUG INEFFECTIVE [None]
